FAERS Safety Report 23310213 (Version 4)
Quarter: 2024Q1

REPORT INFORMATION
  Report Type: Spontaneous
  Country: US (occurrence: US)
  Receive Date: 20231218
  Receipt Date: 20240308
  Transmission Date: 20240410
  Serious: No
  Sender: FDA-Public Use
  Company Number: US-PFIZER INC-202101463888

PATIENT
  Age: 76 Year
  Sex: Female
  Weight: 120.2 kg

DRUGS (1)
  1. ESTRING [Suspect]
     Active Substance: ESTRADIOL
     Dosage: ESTRING 7.5 MCG/24 HOUR RING, VAGINAL, 1 RING PER VAGINA Q3M; QUANTITY FOR 90 DAYS: 1
     Route: 067

REACTIONS (1)
  - Frequent bowel movements [Unknown]
